FAERS Safety Report 9741709 (Version 2)
Quarter: 2013Q4

REPORT INFORMATION
  Report Type: Spontaneous
  Country: US (occurrence: US)
  Receive Date: 20131210
  Receipt Date: 20131213
  Transmission Date: 20140711
  Serious: Yes (Life-Threatening, Hospitalization)
  Sender: FDA-Public Use
  Company Number: US-009507513-1312USA001976

PATIENT
  Age: 48 Year
  Sex: Female

DRUGS (3)
  1. HYZAAR [Suspect]
     Indication: HYPERTENSION
     Dosage: 1 DF, QD, STRENGTH 100/25
     Route: 048
  2. LEVAQUIN [Suspect]
     Dosage: UNK
     Dates: start: 201102
  3. HYDROCHLOROTHIAZIDE (+) LOSARTAN POTASSIUM [Suspect]

REACTIONS (4)
  - Arrhythmia [Recovered/Resolved]
  - Blood pressure abnormal [Recovered/Resolved]
  - Product quality issue [Unknown]
  - Drug ineffective [Unknown]
